FAERS Safety Report 4664094-0 (Version None)
Quarter: 2005Q2

REPORT INFORMATION
  Report Type: 
  Country: None (occurrence: None)
  Receive Date: 20050516
  Receipt Date: 20050503
  Transmission Date: 20051028
  Serious: Yes (Hospitalization)
  Sender: FDA-Public Use
  Company Number: US015108

PATIENT
  Age: 35 Year
  Sex: Male

DRUGS (2)
  1. PROVIGIL [Suspect]
     Indication: ATTENTION DEFICIT/HYPERACTIVITY DISORDER
     Dosage: 200 MG QAM/PM ORAL
     Route: 048
     Dates: start: 20040708
  2. DEXEDRINE   MEDEVA [Concomitant]

REACTIONS (4)
  - ABNORMAL BEHAVIOUR [None]
  - CHOLECYSTECTOMY [None]
  - HALLUCINATION [None]
  - PARANOIA [None]
